FAERS Safety Report 19036921 (Version 2)
Quarter: 2021Q1

REPORT INFORMATION
  Report Type: Spontaneous
  Country: RS (occurrence: RS)
  Receive Date: 20210322
  Receipt Date: 20210326
  Transmission Date: 20210420
  Serious: Yes (Other)
  Sender: FDA-Public Use
  Company Number: RS-ROCHE-2791334

PATIENT
  Age: 58 Year
  Sex: Female

DRUGS (1)
  1. ALECENSA [Suspect]
     Active Substance: ALECTINIB HYDROCHLORIDE
     Indication: NON-SMALL CELL LUNG CANCER
     Route: 048
     Dates: start: 202005

REACTIONS (3)
  - Fatigue [Unknown]
  - Metastases to central nervous system [Unknown]
  - Nervous system disorder [Unknown]

NARRATIVE: CASE EVENT DATE: 202011
